FAERS Safety Report 9274516 (Version 2)
Quarter: 2013Q2

REPORT INFORMATION
  Report Type: Report from Study
  Country: CO (occurrence: CO)
  Receive Date: 20130507
  Receipt Date: 20130513
  Transmission Date: 20140414
  Serious: Yes (Other)
  Sender: FDA-Public Use
  Company Number: CO-ROCHE-1221364

PATIENT
  Sex: Male
  Weight: 81 kg

DRUGS (4)
  1. LUCENTIS [Suspect]
     Indication: DIABETIC RETINOPATHY
     Route: 050
     Dates: start: 20120202, end: 20120202
  2. LUCENTIS [Suspect]
     Route: 050
     Dates: start: 2007
  3. LUCENTIS [Suspect]
     Route: 050
     Dates: start: 201301
  4. INSULIN [Concomitant]

REACTIONS (2)
  - Blindness unilateral [Recovering/Resolving]
  - Cataract [Recovered/Resolved]
